FAERS Safety Report 19350784 (Version 8)
Quarter: 2021Q3

REPORT INFORMATION
  Report Type: Spontaneous
  Country: CA (occurrence: CA)
  Receive Date: 20210531
  Receipt Date: 20210907
  Transmission Date: 20211014
  Serious: Yes (Hospitalization, Other)
  Sender: FDA-Public Use
  Company Number: CA-CELLTRION INC.-2021CA007339

PATIENT

DRUGS (5)
  1. MEZAVANT [Concomitant]
     Active Substance: MESALAMINE
     Dosage: 1 DF, 2.4 GM DAILY
  2. INFLECTRA [Suspect]
     Active Substance: INFLIXIMAB-DYYB
     Indication: CROHN^S DISEASE
     Dosage: 300 MG WEEK 0, 2 AND 6, THEN EVERY 8 WEEKS
     Route: 042
     Dates: start: 20210514, end: 20210514
  3. INFLECTRA [Suspect]
     Active Substance: INFLIXIMAB-DYYB
     Dosage: 300 MG WEEK 0, 2 AND 6, THEN EVERY 8 WEEKS
     Route: 042
     Dates: start: 20210624
  4. INFLECTRA [Suspect]
     Active Substance: INFLIXIMAB-DYYB
     Dosage: 300 MG WEEK 0, 2 AND 6, THEN EVERY 8 WEEKS
     Route: 042
     Dates: start: 20210827
  5. INFLECTRA [Suspect]
     Active Substance: INFLIXIMAB-DYYB
     Dosage: 300 MG WEEK 0, 2 AND 6, THEN EVERY 8 WEEKS
     Route: 042
     Dates: start: 20210528, end: 20210528

REACTIONS (19)
  - Dizziness [Unknown]
  - Nausea [Unknown]
  - Weight decreased [Unknown]
  - Arthritis [Unknown]
  - Off label use [Unknown]
  - Condition aggravated [Unknown]
  - Blood pressure diastolic decreased [Unknown]
  - Nervousness [Unknown]
  - Dysgeusia [Unknown]
  - Fear of injection [Not Recovered/Not Resolved]
  - Syncope [Unknown]
  - Vomiting [Unknown]
  - Bradyphrenia [Unknown]
  - Arthralgia [Unknown]
  - Erythema nodosum [Unknown]
  - Proctitis [Unknown]
  - Pallor [Unknown]
  - Pruritus [Unknown]
  - Inappropriate schedule of product administration [Unknown]

NARRATIVE: CASE EVENT DATE: 2021
